FAERS Safety Report 16483489 (Version 1)
Quarter: 2019Q2

REPORT INFORMATION
  Report Type: Spontaneous
  Country: FR (occurrence: FR)
  Receive Date: 20190627
  Receipt Date: 20190627
  Transmission Date: 20190711
  Serious: Yes (Hospitalization, Other)
  Sender: FDA-Public Use
  Company Number: FR-JNJFOC-20190618652

PATIENT
  Age: 94 Year
  Sex: Male
  Weight: 73 kg

DRUGS (5)
  1. ATORVASTATINE [Suspect]
     Active Substance: ATORVASTATIN
     Route: 048
     Dates: start: 201903, end: 20190418
  2. XARELTO [Suspect]
     Active Substance: RIVAROXABAN
     Indication: ATRIAL FIBRILLATION
     Dosage: 15 MG, QD
     Route: 048
     Dates: start: 201810, end: 20190418
  3. CORDARONE [Suspect]
     Active Substance: AMIODARONE HYDROCHLORIDE
     Indication: CARDIAC FAILURE
     Dosage: 200 MG, QD
     Route: 048
     Dates: start: 201903, end: 20190418
  4. ATORVASTATINE [Suspect]
     Active Substance: ATORVASTATIN
     Indication: MYOCARDIAL INFARCTION
     Dosage: 80 MG, QD
     Route: 048
     Dates: start: 201903, end: 20190418
  5. COLCHIMAX [COLCHICINE,DICYCLOVERINE HYDROCHLORIDE] [Suspect]
     Active Substance: COLCHICINE\DICYCLOMINE HYDROCHLORIDE
     Indication: PERICARDITIS
     Dosage: 1 DF, QD
     Route: 048
     Dates: start: 201903, end: 20190418

REACTIONS (2)
  - Hepatic failure [Recovering/Resolving]
  - Hepatocellular injury [Recovering/Resolving]

NARRATIVE: CASE EVENT DATE: 20190418
